FAERS Safety Report 6557572-0 (Version None)
Quarter: 2010Q1

REPORT INFORMATION
  Report Type: 
  Country: None (occurrence: None)
  Receive Date: 20100129
  Receipt Date: 20100111
  Transmission Date: 20100710
  Serious: No
  Sender: FDA-Public Use
  Company Number: NL-ASTRAZENECA-2009SE32506

PATIENT
  Age: 69 Year
  Sex: Female
  Weight: 60 kg

DRUGS (7)
  1. CRESTOR [Suspect]
     Indication: CEREBRAL INFARCTION
     Route: 048
     Dates: start: 20090810, end: 20091030
  2. PANTOPRAZOLE [Concomitant]
     Route: 048
     Dates: start: 20090810
  3. PERINDOPRIL [Concomitant]
     Route: 048
     Dates: start: 20090810
  4. PERINDOPRIL [Concomitant]
     Route: 048
     Dates: start: 20090810
  5. ACETYLSALICYLIC ACID [Concomitant]
     Route: 048
     Dates: start: 20090810
  6. METOPROLOL [Concomitant]
     Route: 048
     Dates: start: 20090810
  7. PLAVIX [Concomitant]
     Route: 048
     Dates: start: 20090810

REACTIONS (1)
  - POLYARTHRITIS [None]
